FAERS Safety Report 5860028-1 (Version None)
Quarter: 2008Q3

REPORT INFORMATION
  Report Type: 
  Country: None (occurrence: None)
  Receive Date: 20080827
  Receipt Date: 20080818
  Transmission Date: 20090109
  Serious: Yes (Hospitalization)
  Sender: FDA-Public Use
  Company Number: US-PFIZER INC-2008069202

PATIENT

DRUGS (1)
  1. LYRICA [Suspect]

REACTIONS (2)
  - HEPATIC ENZYME INCREASED [None]
  - PLATELET COUNT INCREASED [None]
